FAERS Safety Report 20643342 (Version 1)
Quarter: 2022Q1

REPORT INFORMATION
  Report Type: Spontaneous
  Country: US (occurrence: None)
  Receive Date: 20220326
  Receipt Date: 20220326
  Transmission Date: 20220424
  Serious: Yes (Hospitalization)
  Sender: FDA-Public Use
  Company Number: None

PATIENT
  Age: 28 Year
  Sex: Female
  Weight: 73.8 kg

DRUGS (5)
  1. EMGALITY [Suspect]
     Active Substance: GALCANEZUMAB-GNLM
     Indication: Cluster headache
     Dosage: OTHER QUANTITY : 1 INJECTION(S);?
     Route: 030
     Dates: start: 20220114, end: 20220114
  2. FLONASE [Concomitant]
     Active Substance: FLUTICASONE PROPIONATE
  3. FISH OIL [Concomitant]
     Active Substance: FISH OIL
  4. VITAMINS [Concomitant]
     Active Substance: VITAMINS
  5. HERBALS [Concomitant]
     Active Substance: HERBALS

REACTIONS (11)
  - Tachycardia [None]
  - Palpitations [None]
  - Visual impairment [None]
  - Photopsia [None]
  - Vision blurred [None]
  - Dizziness [None]
  - Vertigo [None]
  - Hypertension [None]
  - Diarrhoea [None]
  - Anxiety [None]
  - Heart rate increased [None]

NARRATIVE: CASE EVENT DATE: 20220120
